FAERS Safety Report 14410672 (Version 2)
Quarter: 2018Q1

REPORT INFORMATION
  Report Type: Spontaneous
  Country: US (occurrence: US)
  Receive Date: 20180119
  Receipt Date: 20180212
  Transmission Date: 20180509
  Serious: No
  Sender: FDA-Public Use
  Company Number: US-CELGENEUS-USA-20180105113

PATIENT
  Age: 64 Year
  Sex: Female

DRUGS (3)
  1. OTEZLA [Suspect]
     Active Substance: APREMILAST
     Dosage: 30 MILLIGRAM
     Route: 048
  2. OTEZLA [Suspect]
     Active Substance: APREMILAST
     Indication: PSORIASIS
     Dosage: TITRATION DOSE
     Route: 048
     Dates: start: 20160727
  3. TOPICORT [Concomitant]
     Active Substance: DESOXIMETASONE
     Indication: PSORIASIS
     Route: 065
     Dates: start: 20161026

REACTIONS (3)
  - Psoriasis [Recovered/Resolved]
  - Nausea [Recovered/Resolved]
  - Headache [Unknown]

NARRATIVE: CASE EVENT DATE: 201801
